FAERS Safety Report 9402463 (Version 2)
Quarter: 2013Q3

REPORT INFORMATION
  Report Type: Spontaneous
  Country: US (occurrence: US)
  Receive Date: 20130716
  Receipt Date: 20130731
  Transmission Date: 20140515
  Serious: Yes (Other)
  Sender: FDA-Public Use
  Company Number: US-FRI-1000046629

PATIENT
  Age: 67 Year
  Sex: Female
  Weight: 71.67 kg

DRUGS (5)
  1. ARMOUR THYROID [Suspect]
     Indication: HYPOTHYROIDISM
     Dosage: 45MG
     Route: 048
     Dates: start: 1994, end: 20130623
  2. ARMOUR THYROID [Suspect]
     Dosage: 22.5MG
     Route: 048
     Dates: start: 20130624
  3. VIT D [Concomitant]
     Dosage: 50,000 TWICE WEEKLY
  4. CLEOCIN T [Concomitant]
     Dosage: 1200MG
  5. CITALOPRAM [Concomitant]

REACTIONS (32)
  - Oesophageal polyp [Unknown]
  - Chest pain [Unknown]
  - Heart rate irregular [Unknown]
  - Palpitations [Unknown]
  - Dyspnoea exertional [Unknown]
  - Malaise [Unknown]
  - Rash [Unknown]
  - Hyperhidrosis [Unknown]
  - Flatulence [Unknown]
  - Change of bowel habit [Unknown]
  - Dyspepsia [Unknown]
  - Abdominal pain upper [Unknown]
  - Arthritis [Unknown]
  - Back pain [Unknown]
  - Gout [Unknown]
  - Arthralgia [Unknown]
  - Cough [Unknown]
  - Headache [Unknown]
  - Anxiety [Unknown]
  - Panic attack [Unknown]
  - Haemoptysis [Unknown]
  - Hepatic cirrhosis [Not Recovered/Not Resolved]
  - Portal hypertension [Unknown]
  - Rectal haemorrhage [Unknown]
  - Blood thyroid stimulating hormone decreased [Not Recovered/Not Resolved]
  - Dysgeusia [Not Recovered/Not Resolved]
  - Abdominal pain lower [Unknown]
  - Constipation [Unknown]
  - Diarrhoea [Unknown]
  - Diverticulum intestinal [Unknown]
  - Haemorrhoids [Unknown]
  - Hiatus hernia [Unknown]
